FAERS Safety Report 12860018 (Version 1)
Quarter: 2016Q4

REPORT INFORMATION
  Report Type: Spontaneous
  Country: US (occurrence: US)
  Receive Date: 20161019
  Receipt Date: 20161019
  Transmission Date: 20170207
  Serious: Yes (Other)
  Sender: FDA-Public Use
  Company Number: None

PATIENT
  Age: 63 Year
  Sex: Male
  Weight: 59.02 kg

DRUGS (1)
  1. LEVELIRACETAM [Suspect]
     Active Substance: LEVETIRACETAM
     Dosage: 3 IN MORING, 2 AT NIGHT
     Dates: start: 201302

REACTIONS (9)
  - Dysphagia [None]
  - Imprisonment [None]
  - Abnormal behaviour [None]
  - Sexual abuse [None]
  - Aggression [None]
  - Insomnia [None]
  - Obsessive-compulsive disorder [None]
  - Adverse drug reaction [None]
  - Anger [None]

NARRATIVE: CASE EVENT DATE: 201302
